FAERS Safety Report 9223485 (Version 4)
Quarter: 2013Q2

REPORT INFORMATION
  Report Type: Spontaneous
  Country: US (occurrence: US)
  Receive Date: 20130410
  Receipt Date: 20130620
  Transmission Date: 20140414
  Serious: No
  Sender: FDA-Public Use
  Company Number: US-PFIZER INC-2013114068

PATIENT
  Age: 38 Year
  Sex: Male

DRUGS (1)
  1. LYRICA [Suspect]
     Dosage: 150 MG, 3X/DAY
     Dates: end: 201304

REACTIONS (3)
  - Malaise [Unknown]
  - Neuropathy peripheral [Unknown]
  - Pain [Unknown]
